FAERS Safety Report 4914842-7 (Version None)
Quarter: 2006Q1

REPORT INFORMATION
  Report Type: 
  Country: None (occurrence: None)
  Receive Date: 20060217
  Receipt Date: 20060208
  Transmission Date: 20060701
  Serious: Yes (Disabling)
  Sender: FDA-Public Use
  Company Number: US-JNJFOC-20051203011

PATIENT
  Sex: Female
  Weight: 95.26 kg

DRUGS (17)
  1. REMICADE [Suspect]
     Route: 042
  2. REMICADE [Suspect]
     Route: 042
  3. REMICADE [Suspect]
     Indication: CROHN'S DISEASE
     Route: 042
  4. NEURONTIN [Concomitant]
  5. ADVAIR DISKUS 100/50 [Concomitant]
  6. ADVAIR DISKUS 100/50 [Concomitant]
  7. NASACORT [Concomitant]
  8. EFFEXOR [Concomitant]
  9. NEXIUM [Concomitant]
  10. RISPERDAL [Concomitant]
  11. NOVOLOG [Concomitant]
  12. ZINAMIDE [Concomitant]
  13. XANAX [Concomitant]
  14. ZESTRIL [Concomitant]
  15. VYTORIN [Concomitant]
  16. 6 MP [Concomitant]
  17. SYNTHROID [Concomitant]

REACTIONS (1)
  - BIPOLAR DISORDER [None]
